FAERS Safety Report 13613595 (Version 2)
Quarter: 2017Q2

REPORT INFORMATION
  Report Type: Spontaneous
  Country: US (occurrence: US)
  Receive Date: 20170605
  Receipt Date: 20170627
  Transmission Date: 20170830
  Serious: No
  Sender: FDA-Public Use
  Company Number: US-ASTRAZENECA-2017SE57765

PATIENT
  Age: 678 Month
  Sex: Female
  Weight: 116.1 kg

DRUGS (5)
  1. METAMUCIL [Concomitant]
     Active Substance: PLANTAGO SEED
     Indication: CONSTIPATION
     Route: 065
  2. METFORMIN [Concomitant]
     Active Substance: METFORMIN HYDROCHLORIDE
     Indication: TYPE 2 DIABETES MELLITUS
     Route: 065
     Dates: start: 2007
  3. DOCUSATE SODIUM. [Concomitant]
     Active Substance: DOCUSATE SODIUM
     Indication: CONSTIPATION
     Dosage: 100.0MG AS REQUIRED
     Route: 065
  4. BYDUREON [Suspect]
     Active Substance: EXENATIDE
     Indication: TYPE 2 DIABETES MELLITUS
     Route: 058
     Dates: start: 201511
  5. LANTUS [Concomitant]
     Active Substance: INSULIN GLARGINE
     Indication: TYPE 2 DIABETES MELLITUS
     Dosage: 45 UNITS IN THE EVENING
     Route: 058
     Dates: start: 2010

REACTIONS (5)
  - Product quality issue [Unknown]
  - Malaise [Unknown]
  - Abdominal pain upper [Recovered/Resolved]
  - Underdose [Unknown]
  - Constipation [Unknown]

NARRATIVE: CASE EVENT DATE: 201511
